FAERS Safety Report 19195696 (Version 1)
Quarter: 2021Q2

REPORT INFORMATION
  Report Type: Spontaneous
  Country: DE (occurrence: DE)
  Receive Date: 20210429
  Receipt Date: 20210429
  Transmission Date: 20210717
  Serious: Yes (Hospitalization, Other)
  Sender: FDA-Public Use
  Company Number: NVSC2021DE085629

PATIENT
  Age: 68 Year
  Sex: Female
  Weight: 75 kg

DRUGS (10)
  1. MILNANEURAX [Suspect]
     Active Substance: MILNACIPRAN HYDROCHLORIDE
     Indication: DEPRESSION
     Dosage: 50 MG, BID (MORNING AND NOON)
     Route: 065
     Dates: start: 202007
  2. NOVAMINSULFON [Concomitant]
     Active Substance: METAMIZOLE
     Indication: PRODUCT USED FOR UNKNOWN INDICATION
     Dosage: UNK
     Route: 065
  3. BISOPROLOL [Concomitant]
     Active Substance: BISOPROLOL
     Indication: PRODUCT USED FOR UNKNOWN INDICATION
     Dosage: 5 MG, QD
     Route: 065
  4. PIPAMPERONE [Concomitant]
     Active Substance: PIPAMPERONE
     Indication: PRODUCT USED FOR UNKNOWN INDICATION
     Dosage: 40 MG, PRN
     Route: 065
  5. IBUHEXAL [Suspect]
     Active Substance: IBUPROFEN
     Indication: PAIN
     Dosage: 400 MG, TID (POST SURGERY, NOT USED PRIOR TO SPINAL BLEEDING)
     Route: 065
     Dates: start: 20210113
  6. SIMVASTATIN. [Concomitant]
     Active Substance: SIMVASTATIN
     Indication: PRODUCT USED FOR UNKNOWN INDICATION
     Dosage: 10 MG, QD (EVENING)
     Route: 065
  7. MIRTAZAPINE. [Concomitant]
     Active Substance: MIRTAZAPINE
     Indication: PRODUCT USED FOR UNKNOWN INDICATION
     Dosage: 30 MG, QD (EVENING)
     Route: 065
  8. FLECAINIDE [Concomitant]
     Active Substance: FLECAINIDE
     Indication: PRODUCT USED FOR UNKNOWN INDICATION
     Dosage: 50 MG, BID
     Route: 065
  9. VIGANTOL [Concomitant]
     Indication: PRODUCT USED FOR UNKNOWN INDICATION
     Dosage: 2000 IU, QD
     Route: 065
  10. ELIQUIS [Suspect]
     Active Substance: APIXABAN
     Indication: CEREBROVASCULAR ACCIDENT PROPHYLAXIS
     Dosage: 5 MG, BID
     Route: 065
     Dates: start: 2019, end: 20210114

REACTIONS (6)
  - Sciatica [Unknown]
  - Depression [Unknown]
  - Post procedural haemorrhage [Unknown]
  - Spinal cord haemorrhage [Unknown]
  - Faecaloma [Recovering/Resolving]
  - Paraplegia [Recovering/Resolving]

NARRATIVE: CASE EVENT DATE: 20210113
